FAERS Safety Report 10171720 (Version 1)
Quarter: 2014Q2

REPORT INFORMATION
  Report Type: Spontaneous
  Country: US (occurrence: None)
  Receive Date: 20140428
  Receipt Date: 20140428
  Transmission Date: 20141212
  Serious: Yes (Other)
  Sender: FDA-Public Use
  Company Number: PHHY2014US021562

PATIENT
  Age: 47 Year
  Sex: Female
  Weight: 114.3 kg

DRUGS (4)
  1. GILENYA [Suspect]
     Indication: RELAPSING-REMITTING MULTIPLE SCLEROSIS
     Dates: start: 201011
  2. VITAMIN C [Concomitant]
  3. VITAMIN D (ERGOCALCIFEROL) [Concomitant]
  4. IRON (IRON) [Concomitant]

REACTIONS (1)
  - Leukopenia [None]
